FAERS Safety Report 5140962-0 (Version None)
Quarter: 2006Q4

REPORT INFORMATION
  Report Type: 
  Country: None (occurrence: None)
  Receive Date: 20061027
  Receipt Date: 20061027
  Transmission Date: 20070319
  Serious: Yes (Hospitalization)
  Sender: FDA-Public Use
  Company Number: None

PATIENT
  Age: 46 Year
  Sex: Female
  Weight: 63.5036 kg

DRUGS (3)
  1. MITOXANTRONE [Suspect]
     Indication: MULTIPLE SCLEROSIS
     Dosage: 20 MG   Q 3 MONTH    I.V.
     Route: 042
     Dates: start: 20051011
  2. MITOXANTRONE [Suspect]
     Indication: MULTIPLE SCLEROSIS
     Dosage: 20 MG   Q 3 MONTH    I.V.
     Route: 042
     Dates: start: 20060222
  3. MITOXANTRONE [Suspect]
     Indication: MULTIPLE SCLEROSIS
     Dosage: 20 MG   Q 3 MONTH    I.V.
     Route: 042
     Dates: start: 20061011

REACTIONS (4)
  - ATELECTASIS [None]
  - NEUTROPENIA [None]
  - PULMONARY EMBOLISM [None]
  - URINARY TRACT INFECTION [None]
